FAERS Safety Report 21264895 (Version 1)
Quarter: 2022Q3

REPORT INFORMATION
  Report Type: Spontaneous
  Country: US (occurrence: US)
  Receive Date: 20220829
  Receipt Date: 20220829
  Transmission Date: 20221027
  Serious: Yes (Hospitalization, Other)
  Sender: FDA-Public Use
  Company Number: US-Accord-274846

PATIENT
  Age: 70 Year
  Sex: Male

DRUGS (8)
  1. AZACITIDINE [Suspect]
     Active Substance: AZACITIDINE
     Indication: Acute myeloid leukaemia
  2. HYDROXYUREA [Concomitant]
     Active Substance: HYDROXYUREA
     Indication: Acute myeloid leukaemia
  3. LEVOFLOXACIN [Concomitant]
     Active Substance: LEVOFLOXACIN
     Indication: Infection
  4. CEFEPIME [Concomitant]
     Active Substance: CEFEPIME HYDROCHLORIDE
     Indication: Infection
  5. AZITHROMYCIN [Concomitant]
     Active Substance: AZITHROMYCIN
     Indication: Infection
  6. PIPERACILLIN AND TAZOBACTAM [Concomitant]
     Active Substance: PIPERACILLIN SODIUM\TAZOBACTAM SODIUM
     Indication: Infection
  7. VANCOMYCIN [Concomitant]
     Active Substance: VANCOMYCIN
     Indication: Infection
  8. MEROPENEM [Concomitant]
     Active Substance: MEROPENEM
     Indication: Infection

REACTIONS (3)
  - Pneumonitis [Recovered/Resolved]
  - Acute respiratory failure [Recovered/Resolved]
  - Pancytopenia [Recovered/Resolved]
